FAERS Safety Report 5906514-7 (Version None)
Quarter: 2008Q4

REPORT INFORMATION
  Report Type: 
  Country: None (occurrence: None)
  Receive Date: 20081002
  Receipt Date: 20080922
  Transmission Date: 20090506
  Serious: No
  Sender: FDA-Public Use
  Company Number: US-B.I. PHARMACEUTICALS,INC./RIDGEFIELD-2008-BP-14791BP

PATIENT
  Sex: Female

DRUGS (3)
  1. CATAPRES-TTS-1 [Suspect]
     Indication: HYPERTENSION
     Dosage: .3MG
     Route: 061
     Dates: start: 20080101
  2. COZAAR [Concomitant]
  3. INHALER [Concomitant]

REACTIONS (3)
  - APPLICATION SITE EXFOLIATION [None]
  - RASH PAPULAR [None]
  - RASH PRURITIC [None]
